FAERS Safety Report 10231600 (Version 6)
Quarter: 2014Q3

REPORT INFORMATION
  Report Type: Spontaneous
  Country: US (occurrence: US)
  Receive Date: 20140611
  Receipt Date: 20140918
  Transmission Date: 20150326
  Serious: Yes (Hospitalization)
  Sender: FDA-Public Use
  Company Number: US-ACTELION-A-US2014-99075

PATIENT
  Age: 70 Year
  Sex: Female

DRUGS (5)
  1. VELETRI [Suspect]
     Active Substance: EPOPROSTENOL
     Indication: PULMONARY ARTERIAL HYPERTENSION
     Dosage: 8.3 UNK, UNK
     Route: 042
     Dates: start: 20140509
  2. ADCIRCA [Concomitant]
     Active Substance: TADALAFIL
  3. COUMADIN [Concomitant]
     Active Substance: WARFARIN SODIUM
  4. VELETRI [Suspect]
     Active Substance: EPOPROSTENOL
     Dosage: 2 NG/KG, PER MIN
     Route: 042
     Dates: start: 20140506
  5. VELETRI [Suspect]
     Active Substance: EPOPROSTENOL
     Dosage: 5.23 NG/KG, PER MIN
     Route: 041
     Dates: start: 20140509

REACTIONS (8)
  - Asthenia [Unknown]
  - Dehydration [Recovered/Resolved]
  - Headache [Unknown]
  - Skin discolouration [Unknown]
  - Malaise [Unknown]
  - Blood pressure systolic decreased [Unknown]
  - Pain [Unknown]
  - Pruritus [Unknown]

NARRATIVE: CASE EVENT DATE: 20140511
